FAERS Safety Report 21575109 (Version 1)
Quarter: 2022Q4

REPORT INFORMATION
  Report Type: Report from Study
  Country: NL (occurrence: NL)
  Receive Date: 20221110
  Receipt Date: 20221110
  Transmission Date: 20230112
  Serious: Yes (Death, Hospitalization, Other)
  Sender: FDA-Public Use
  Company Number: NL-CELLTRION INC.-2022NL018424

PATIENT

DRUGS (12)
  1. RITUXIMAB [Suspect]
     Active Substance: RITUXIMAB
     Indication: B-cell lymphoma
     Dosage: ON 04/AUG/2021, 17/JAN/2022, 14/MAR/2022 LAST DOSE OF RITUXIMAB PRIOR TO EVENT
     Dates: start: 20211122, end: 20220314
  2. EPCORITAMAB [Suspect]
     Active Substance: EPCORITAMAB
     Indication: Follicular lymphoma
     Dosage: PRIMING DOSE OF (0.16 MG) ON 22-NOV-2021, THE INTERMEDIATE DOSE OF (0.8 MG) ON
     Route: 058
     Dates: start: 20211122, end: 20211122
  3. LENALIDOMIDE [Suspect]
     Active Substance: LENALIDOMIDE
     Indication: Follicular lymphoma
     Dosage: 20 MILLIGRAM
     Route: 048
     Dates: start: 20211122
  4. METOPROLOL [Concomitant]
     Active Substance: METOPROLOL
     Dosage: UNK
     Dates: start: 20180107
  5. ASPIRIN [Concomitant]
     Active Substance: ASPIRIN
     Dosage: UNK
     Dates: start: 20180117, end: 20220430
  6. SULFAMETHOXAZOLE\TRIMETHOPRIM [Concomitant]
     Active Substance: SULFAMETHOXAZOLE\TRIMETHOPRIM
     Dosage: UNK
     Dates: start: 20211122
  7. NADROPARIN CALCIUM [Concomitant]
     Active Substance: NADROPARIN CALCIUM
     Dosage: UNK
     Dates: start: 20220425, end: 20220430
  8. SILDENAFIL [Concomitant]
     Active Substance: SILDENAFIL
  9. MOMETASONE [Concomitant]
     Active Substance: MOMETASONE
  10. METFORMIN [Concomitant]
     Active Substance: METFORMIN HYDROCHLORIDE
     Dosage: UNK
     Dates: start: 20210917
  11. SIMVASTATIN [Concomitant]
     Active Substance: SIMVASTATIN
  12. GLICLAZIDE [Concomitant]
     Active Substance: GLICLAZIDE
     Dosage: UNK
     Dates: start: 20220110, end: 20220426

REACTIONS (2)
  - COVID-19 [Fatal]
  - Sinusitis [Unknown]

NARRATIVE: CASE EVENT DATE: 20220228
